FAERS Safety Report 22304910 (Version 1)
Quarter: 2023Q2

REPORT INFORMATION
  Report Type: Spontaneous
  Country: US (occurrence: US)
  Receive Date: 20230510
  Receipt Date: 20230510
  Transmission Date: 20230722
  Serious: No
  Sender: FDA-Public Use
  Company Number: US-Amarin Pharma, Inc.-2022AMR001264

PATIENT

DRUGS (5)
  1. VASCEPA [Suspect]
     Active Substance: ICOSAPENT ETHYL
     Indication: Thyroid hormones decreased
     Route: 048
  2. LEVOXYL [Concomitant]
     Active Substance: LEVOTHYROXINE SODIUM
     Indication: Thyroid hormones decreased
     Dosage: CHANGE THYROID MEDICATION DOSAGE EVERY ONCE IN A WHILE DEPENDING ON THYROID LEVELS
  3. CHONDROITIN SULFATE A\GLUCOSAMINE [Concomitant]
     Active Substance: CHONDROITIN SULFATE A\GLUCOSAMINE
     Indication: Arthropathy
  4. VITAMIN D [Concomitant]
     Active Substance: VITAMIN D NOS
     Indication: Product used for unknown indication
  5. UNSPECIFIED INGREDIENT [Concomitant]
     Active Substance: UNSPECIFIED INGREDIENT
     Indication: Asthma
     Dosage: PRN

REACTIONS (3)
  - Off label use [Unknown]
  - Intentional product misuse [Unknown]
  - Expired product administered [Unknown]
